FAERS Safety Report 17072435 (Version 1)
Quarter: 2019Q4

REPORT INFORMATION
  Report Type: Spontaneous
  Country: US (occurrence: US)
  Receive Date: 20191124
  Receipt Date: 20191124
  Transmission Date: 20200122
  Serious: Yes (Life-Threatening)
  Sender: FDA-Public Use
  Company Number: None

PATIENT
  Age: 58 Year
  Sex: Female
  Weight: 56.25 kg

DRUGS (1)
  1. HIZENTRA [Suspect]
     Active Substance: HUMAN IMMUNOGLOBULIN G
     Indication: IMMUNODEFICIENCY COMMON VARIABLE
     Dosage: ?          QUANTITY:50 ML;OTHER FREQUENCY:WEEKLY;OTHER ROUTE:SUBCUTANEOUS INFUSION?
     Dates: start: 20160215

REACTIONS (2)
  - Influenza like illness [None]
  - Anaphylactic reaction [None]

NARRATIVE: CASE EVENT DATE: 20191122
